FAERS Safety Report 6177561-8 (Version None)
Quarter: 2009Q2

REPORT INFORMATION
  Report Type: 
  Country: None (occurrence: None)
  Receive Date: 20090504
  Receipt Date: 20090423
  Transmission Date: 20091009
  Serious: Yes (Other)
  Sender: FDA-Public Use
  Company Number: AU-ELI_LILLY_AND_COMPANY-AU200902003852

PATIENT
  Sex: Female

DRUGS (5)
  1. CYMBALTA [Suspect]
     Indication: DEPRESSION
     Dosage: 30 MG, DAILY (1/D)
     Route: 065
     Dates: start: 20081110
  2. CYMBALTA [Suspect]
     Dosage: 90 MG, DAILY (1/D)
     Route: 048
  3. CRESTOR [Concomitant]
     Indication: BLOOD CHOLESTEROL INCREASED
     Dosage: 1 D/F, EACH EVENING
     Route: 065
     Dates: start: 20080701
  4. SOMAC [Concomitant]
     Indication: BARRETT'S OESOPHAGUS
     Dosage: 3 D/F, DAILY (1/D)
     Route: 065
     Dates: start: 20080701
  5. CAFERGOT [Concomitant]
     Indication: MIGRAINE
     Dosage: UNK, AS NEEDED
     Route: 065

REACTIONS (1)
  - EXTRAPYRAMIDAL DISORDER [None]
